FAERS Safety Report 16607578 (Version 1)
Quarter: 2019Q3

REPORT INFORMATION
  Report Type: Report from Study
  Country: CA (occurrence: CA)
  Receive Date: 20190722
  Receipt Date: 20190722
  Transmission Date: 20191004
  Serious: Yes (Hospitalization)
  Sender: FDA-Public Use
  Company Number: CA-TOLMAR, INC.-2019CA007481

PATIENT

DRUGS (5)
  1. ELIGARD [Suspect]
     Active Substance: LEUPROLIDE ACETATE
     Dosage: 30 MG, EVERY 4 MONTHS
     Route: 058
     Dates: start: 20190327
  2. SANDOZ MORPHINE [Concomitant]
     Active Substance: MORPHINE SULFATE
     Dosage: 1 TABLET, EVERY 12 HOURS
     Route: 065
     Dates: start: 20190207
  3. DOCUSATE SODIUM. [Concomitant]
     Active Substance: DOCUSATE SODIUM
     Dosage: 2-4 CAPS BID AT BREAKFAST AND BEDTIME AS NEEDED
     Route: 065
     Dates: start: 20190412
  4. ELIGARD [Suspect]
     Active Substance: LEUPROLIDE ACETATE
     Indication: PROSTATE CANCER
     Dosage: 30 MG, EVERY 4 MONTHS
     Route: 058
     Dates: start: 20170912
  5. LOPERAMIDE [Concomitant]
     Active Substance: LOPERAMIDE
     Dosage: 1 TAB, IF DIARRHEA (MAX 8 PER DAY)
     Route: 065

REACTIONS (5)
  - Infarction [Unknown]
  - Abdominal pain upper [Unknown]
  - Arterial occlusive disease [Unknown]
  - Pain in extremity [Unknown]
  - Hypoaesthesia [Unknown]

NARRATIVE: CASE EVENT DATE: 20190418
